FAERS Safety Report 7438262-9 (Version None)
Quarter: 2011Q2

REPORT INFORMATION
  Report Type: 
  Country: None (occurrence: None)
  Receive Date: 20110426
  Receipt Date: 20101117
  Transmission Date: 20111010
  Serious: No
  Sender: FDA-Public Use
  Company Number: US-BAYER-2010-003679

PATIENT
  Age: 40 Year
  Sex: Female

DRUGS (1)
  1. MIRENA [Suspect]
     Dosage: UNK
     Dates: start: 20100501, end: 20101104

REACTIONS (6)
  - ACNE [None]
  - DANDRUFF [None]
  - HEADACHE [None]
  - PRURITUS [None]
  - RASH [None]
  - ALOPECIA [None]
